FAERS Safety Report 8424044-8 (Version None)
Quarter: 2012Q2

REPORT INFORMATION
  Report Type: 
  Country: None (occurrence: None)
  Receive Date: 20120608
  Receipt Date: 20110414
  Transmission Date: 20120825
  Serious: No
  Sender: FDA-Public Use
  Company Number: US-ASTRAZENECA-2011SE21449

PATIENT
  Sex: Male

DRUGS (2)
  1. PULMICORT [Suspect]
     Indication: ASTHMA
     Dosage: 0.25 MG TWICE DAILY
     Route: 055
     Dates: start: 20070101
  2. XOPENEX [Concomitant]

REACTIONS (1)
  - ASTHMA [None]
